FAERS Safety Report 5802347-0 (Version None)
Quarter: 2008Q3

REPORT INFORMATION
  Report Type: 
  Country: None (occurrence: None)
  Receive Date: 20080707
  Receipt Date: 20071206
  Transmission Date: 20090109
  Serious: No
  Sender: FDA-Public Use
  Company Number: US-BOEHRINGER INGELHEIM GMBH, GERMANY-2007-BP-01547BP

PATIENT
  Sex: Female

DRUGS (15)
  1. MIRAPEX [Suspect]
     Indication: RESTLESS LEGS SYNDROME
     Dates: start: 20041123, end: 20060201
  2. MIRAPEX [Suspect]
     Dates: start: 20040907, end: 20041123
  3. MIRAPEX [Suspect]
     Dates: start: 20040219, end: 20040907
  4. MIRAPEX [Suspect]
     Dates: start: 20020912, end: 20040219
  5. MIRAPEX [Suspect]
     Dates: start: 20020311, end: 20020912
  6. MIRAPEX [Suspect]
     Dates: start: 20020107, end: 20020311
  7. MIRAPEX [Suspect]
     Dates: start: 20000831, end: 20020107
  8. MIRAPEX [Suspect]
     Dates: start: 20000711, end: 20000831
  9. PREMARIN [Concomitant]
     Dates: start: 20000111
  10. DYAZIDE [Concomitant]
     Dates: start: 20000111
  11. PRILOSEC [Concomitant]
     Dates: start: 20000111
  12. BETAPACE [Concomitant]
     Dates: end: 20041022
  13. TYLENOL W/ CODEINE NO. 4 [Concomitant]
     Indication: PAIN
     Dates: start: 20000711, end: 20010201
  14. DALMANE [Concomitant]
     Indication: SLEEP DISORDER
     Dates: end: 20010201
  15. RYTHMOL [Concomitant]
     Dates: end: 20040901

REACTIONS (5)
  - COMPULSIVE SHOPPING [None]
  - ECONOMIC PROBLEM [None]
  - EMOTIONAL DISTRESS [None]
  - INJURY [None]
  - PATHOLOGICAL GAMBLING [None]
